FAERS Safety Report 22889352 (Version 4)
Quarter: 2025Q3

REPORT INFORMATION
  Report Type: Spontaneous
  Country: US (occurrence: US)
  Receive Date: 20230831
  Receipt Date: 20250918
  Transmission Date: 20251020
  Serious: No
  Sender: SANOFI AVENTIS
  Company Number: US-SA-SAC20230828000567

PATIENT
  Age: 13 Year
  Sex: Male
  Weight: 71.655 kg

DRUGS (4)
  1. CEREZYME [Suspect]
     Active Substance: IMIGLUCERASE
     Indication: Gaucher^s disease
     Dosage: 4400 IU, QOW
     Route: 042
     Dates: start: 202307
  2. CEREZYME [Suspect]
     Active Substance: IMIGLUCERASE
     Dosage: 8400 IU, QOW
     Route: 042
  3. STERILE WATER [Concomitant]
     Active Substance: WATER
     Route: 065
  4. SODIUM CHLORIDE [Concomitant]
     Active Substance: SODIUM CHLORIDE

REACTIONS (2)
  - Weight increased [Not Recovered/Not Resolved]
  - Mass [Unknown]
